FAERS Safety Report 23587055 (Version 1)
Quarter: 2024Q1

REPORT INFORMATION
  Report Type: Spontaneous
  Country: PT (occurrence: PT)
  Receive Date: 20240301
  Receipt Date: 20240301
  Transmission Date: 20240410
  Serious: Yes (Hospitalization, Other)
  Sender: FDA-Public Use
  Company Number: PT-CELLTRION HEALTHCARE HUNGARY KFT-2024PT000877

PATIENT
  Age: 73 Year
  Sex: Male

DRUGS (30)
  1. CYCLOPHOSPHAMIDE [Suspect]
     Active Substance: CYCLOPHOSPHAMIDE
     Dosage: FIFTH CYCLE
     Route: 065
  2. CYCLOPHOSPHAMIDE [Suspect]
     Active Substance: CYCLOPHOSPHAMIDE
     Indication: Diffuse large B-cell lymphoma stage IV
     Dosage: FIRST CYCLE
     Route: 065
     Dates: start: 202101
  3. CYCLOPHOSPHAMIDE [Suspect]
     Active Substance: CYCLOPHOSPHAMIDE
     Dosage: FOURTH CYCLE
     Route: 065
     Dates: start: 202104
  4. CYCLOPHOSPHAMIDE [Suspect]
     Active Substance: CYCLOPHOSPHAMIDE
     Dosage: SECOND CYCLE
     Route: 065
  5. CYCLOPHOSPHAMIDE [Suspect]
     Active Substance: CYCLOPHOSPHAMIDE
     Dosage: SIXTH CYCLE
     Route: 065
  6. CYCLOPHOSPHAMIDE [Suspect]
     Active Substance: CYCLOPHOSPHAMIDE
     Dosage: THIRD CYCLE
     Route: 065
     Dates: start: 202103
  7. DOXORUBICIN [Suspect]
     Active Substance: DOXORUBICIN
     Indication: Diffuse large B-cell lymphoma stage IV
     Dosage: FIFTH CYCLE
     Route: 065
  8. DOXORUBICIN [Suspect]
     Active Substance: DOXORUBICIN
     Dosage: FIRST CYCLE
     Route: 065
     Dates: start: 202101
  9. DOXORUBICIN [Suspect]
     Active Substance: DOXORUBICIN
     Dosage: FOURTH CYCLE
     Route: 065
     Dates: start: 202104
  10. DOXORUBICIN [Suspect]
     Active Substance: DOXORUBICIN
     Dosage: SECOND CYCLE
     Route: 065
  11. DOXORUBICIN [Suspect]
     Active Substance: DOXORUBICIN
     Dosage: SIXTH CYCLE
     Route: 065
  12. DOXORUBICIN [Suspect]
     Active Substance: DOXORUBICIN
     Dosage: THIRD CYCLE
     Route: 065
     Dates: start: 202103
  13. PREDNISONE [Suspect]
     Active Substance: PREDNISONE
     Dosage: FIFTH CYCLE
     Route: 065
  14. PREDNISONE [Suspect]
     Active Substance: PREDNISONE
     Indication: Diffuse large B-cell lymphoma stage IV
     Dosage: FIRST CYCLE
     Route: 065
     Dates: start: 202101
  15. PREDNISONE [Suspect]
     Active Substance: PREDNISONE
     Dosage: FOURTH CYCLE
     Route: 065
     Dates: start: 202104
  16. PREDNISONE [Suspect]
     Active Substance: PREDNISONE
     Dosage: SECOND CYCLE
     Route: 065
  17. PREDNISONE [Suspect]
     Active Substance: PREDNISONE
     Dosage: SIXTH CYCLE
     Route: 065
  18. PREDNISONE [Suspect]
     Active Substance: PREDNISONE
     Dosage: THIRD CYCLE
     Route: 065
     Dates: start: 202103
  19. RITUXIMAB [Suspect]
     Active Substance: RITUXIMAB
     Indication: Diffuse large B-cell lymphoma stage IV
     Dosage: FIFTH CYCLE
     Route: 065
  20. RITUXIMAB [Suspect]
     Active Substance: RITUXIMAB
     Dosage: FIRST CYCLE
     Route: 065
     Dates: start: 202101
  21. RITUXIMAB [Suspect]
     Active Substance: RITUXIMAB
     Dosage: FOURTH CYCLE
     Route: 065
     Dates: start: 202104
  22. RITUXIMAB [Suspect]
     Active Substance: RITUXIMAB
     Dosage: SECOND CYCLE
     Route: 065
  23. RITUXIMAB [Suspect]
     Active Substance: RITUXIMAB
     Dosage: SIXTH CYCLE
     Route: 065
  24. RITUXIMAB [Suspect]
     Active Substance: RITUXIMAB
     Dosage: THIRD CYCLE
     Route: 065
     Dates: start: 202103
  25. VINCRISTINE [Suspect]
     Active Substance: VINCRISTINE
     Dosage: FIFTH CYCLE
     Route: 065
  26. VINCRISTINE [Suspect]
     Active Substance: VINCRISTINE
     Dosage: FIRST CYCLE
     Route: 065
     Dates: start: 202101
  27. VINCRISTINE [Suspect]
     Active Substance: VINCRISTINE
     Dosage: FOURTH CYCLE
     Route: 065
     Dates: start: 202104
  28. VINCRISTINE [Suspect]
     Active Substance: VINCRISTINE
     Dosage: SECOND CYCLE
     Route: 065
  29. VINCRISTINE [Suspect]
     Active Substance: VINCRISTINE
     Indication: Diffuse large B-cell lymphoma stage IV
     Dosage: SIXTH CYCLE
     Route: 065
  30. VINCRISTINE [Suspect]
     Active Substance: VINCRISTINE
     Dosage: THIRD CYCLE
     Route: 065
     Dates: start: 202103

REACTIONS (4)
  - Pancytopenia [Recovered/Resolved]
  - Neutropenia [Recovered/Resolved]
  - Leukopenia [Recovered/Resolved]
  - COVID-19 [Recovered/Resolved]

NARRATIVE: CASE EVENT DATE: 20210101
